FAERS Safety Report 19876984 (Version 1)
Quarter: 2021Q3

REPORT INFORMATION
  Report Type: Spontaneous
  Country: IT (occurrence: IT)
  Receive Date: 20210923
  Receipt Date: 20210923
  Transmission Date: 20211014
  Serious: Yes (Other)
  Sender: FDA-Public Use
  Company Number: IT-MYLANLABS-2021M1064583

PATIENT
  Age: 59 Year
  Sex: Female

DRUGS (2)
  1. CYRAMZA [Suspect]
     Active Substance: RAMUCIRUMAB
     Indication: ADENOCARCINOMA GASTRIC
     Dosage: UNK UNK, WEEKLY (1/W)
     Route: 065
     Dates: start: 20190324, end: 201909
  2. PACLITAXEL. [Suspect]
     Active Substance: PACLITAXEL
     Indication: ADENOCARCINOMA GASTRIC
     Dosage: UNK UNK, WEEKLY (1/W)
     Route: 065
     Dates: start: 20190324, end: 201909

REACTIONS (9)
  - Osteolysis [Unknown]
  - Pelvic pain [Unknown]
  - Malignant neoplasm progression [Unknown]
  - Decreased appetite [Unknown]
  - Intestinal obstruction [Unknown]
  - Neutropenia [Unknown]
  - Weight decreased [Unknown]
  - Ascites [Unknown]
  - Epistaxis [Unknown]

NARRATIVE: CASE EVENT DATE: 201907
